FAERS Safety Report 14724269 (Version 3)
Quarter: 2018Q2

REPORT INFORMATION
  Report Type: Spontaneous
  Country: US (occurrence: US)
  Receive Date: 20180405
  Receipt Date: 20180425
  Transmission Date: 20180711
  Serious: No
  Sender: FDA-Public Use
  Company Number: US-009507513-1804USA002492

PATIENT
  Age: 28 Year
  Sex: Female

DRUGS (2)
  1. NEXPLANON [Suspect]
     Active Substance: ETONOGESTREL
     Dosage: 1 ROD
     Route: 059
     Dates: start: 201801
  2. NEXPLANON [Suspect]
     Active Substance: ETONOGESTREL
     Dosage: 1 ROD
     Route: 059

REACTIONS (1)
  - Implant site vesicles [Recovered/Resolved]

NARRATIVE: CASE EVENT DATE: 2018
